FAERS Safety Report 7571395-5 (Version None)
Quarter: 2011Q2

REPORT INFORMATION
  Report Type: 
  Country: None (occurrence: None)
  Receive Date: 20110624
  Receipt Date: 20110621
  Transmission Date: 20111010
  Serious: Yes (Life-Threatening, Other)
  Sender: FDA-Public Use
  Company Number: JP-PFIZER INC-2011129004

PATIENT
  Sex: Female
  Weight: 3.07 kg

DRUGS (3)
  1. PROSTAGLANDIN F2 ALPHA [Concomitant]
     Indication: LABOUR INDUCTION
     Dosage: 3 MG, 1X/DAY
     Route: 064
     Dates: start: 20110611, end: 20110611
  2. CEFACLOR [Concomitant]
     Indication: PREMATURE RUPTURE OF MEMBRANES
     Dosage: 250 MG, 1X/DAY
     Route: 064
     Dates: start: 20110611, end: 20110611
  3. UNASYN [Suspect]
     Indication: INFECTION PROPHYLAXIS
     Dosage: 1.5 MG, 1X/DAY
     Route: 064
     Dates: start: 20110611, end: 20110611

REACTIONS (4)
  - MATERNAL DRUGS AFFECTING FOETUS [None]
  - DRUG EXPOSURE DURING PREGNANCY [None]
  - NEONATAL ASPHYXIA [None]
  - CAESAREAN SECTION [None]
